FAERS Safety Report 25923220 (Version 1)
Quarter: 2025Q4

REPORT INFORMATION
  Report Type: Spontaneous
  Country: US (occurrence: US)
  Receive Date: 20251015
  Receipt Date: 20251015
  Transmission Date: 20260117
  Serious: Yes (Other)
  Sender: CHURCH & DWIGHT
  Company Number: US-CHURCH AND DWIGHT CO., INC-2025-CDW-01601

PATIENT

DRUGS (1)
  1. ZICAM COLD REMEDY NASAL SWABS (HOMEOPATHICS) [Suspect]
     Active Substance: HOMEOPATHICS\ZINC ACETATE\ZINC GLUCONATE
     Indication: Product used for unknown indication
     Dosage: UNK
     Route: 045
     Dates: start: 20250418

REACTIONS (5)
  - Blindness transient [Unknown]
  - Uveitis [Unknown]
  - Paranasal sinus discomfort [Not Recovered/Not Resolved]
  - Bacillus infection [Unknown]
  - Immunodeficiency [Unknown]

NARRATIVE: CASE EVENT DATE: 20250517
